FAERS Safety Report 8081350-7 (Version None)
Quarter: 2012Q1

REPORT INFORMATION
  Report Type: 
  Country: None (occurrence: None)
  Receive Date: 20120130
  Receipt Date: 20120125
  Transmission Date: 20120608
  Serious: Yes (Hospitalization, Other)
  Sender: FDA-Public Use
  Company Number: IL-ABBOTT-11P-082-0874772-00

PATIENT
  Age: 56 Year
  Sex: Male

DRUGS (1)
  1. HUMIRA [Suspect]
     Indication: PSORIASIS

REACTIONS (7)
  - LYMPHADENOPATHY [None]
  - PLEURAL EFFUSION [None]
  - TUBERCULOSIS [None]
  - PYREXIA [None]
  - POLYSEROSITIS [None]
  - STOMACH GRANULOMA [None]
  - RENAL FAILURE [None]
